FAERS Safety Report 5027178-3 (Version None)
Quarter: 2006Q2

REPORT INFORMATION
  Report Type: 
  Country: None (occurrence: None)
  Receive Date: 20060501
  Receipt Date: 20060201
  Transmission Date: 20061013
  Serious: No
  Sender: FDA-Public Use
  Company Number: 200610644BWH

PATIENT
  Age: 77 Year
  Sex: Male

DRUGS (4)
  1. NEXAVAR [Suspect]
     Indication: RENAL CELL CARCINOMA STAGE UNSPECIFIED
     Dosage: 400 MG, BID, ORAL
     Route: 048
     Dates: start: 20060123
  2. BLOOD PRESSURE MEDICATION (NOS) [Concomitant]
  3. PAIN MEDICATION (NOS) [Concomitant]
  4. NEXIUM [Concomitant]

REACTIONS (4)
  - CONSTIPATION [None]
  - DYSPHONIA [None]
  - NAUSEA [None]
  - WEIGHT DECREASED [None]
